FAERS Safety Report 4374129-0 (Version None)
Quarter: 2004Q2

REPORT INFORMATION
  Report Type: 
  Country: None (occurrence: None)
  Receive Date: 20040603
  Receipt Date: 20040504
  Transmission Date: 20050107
  Serious: Yes (Death)
  Sender: FDA-Public Use
  Company Number: M2004.0522

PATIENT
  Age: 42 Year
  Sex: Male

DRUGS (7)
  1. METFORMIN HCL [Suspect]
     Dosage: SINGLE OVERDOSE
  2. INSULIN [Concomitant]
  3. CLARITHTROMYCIN (CLARITHROMYCIN) [Concomitant]
  4. DOMPERIDONE (DOMPERIDONE) [Concomitant]
  5. IBUPROFEN [Concomitant]
  6. BUFLOMEDIL (BUFLOMEDIL) [Concomitant]
  7. TIAPROFENIC ACID (TIAPROFENIC ACID) [Concomitant]

REACTIONS (18)
  - ABDOMINAL PAIN [None]
  - ACUTE RESPIRATORY DISTRESS SYNDROME [None]
  - ANURIA [None]
  - BLOOD GLUCOSE INCREASED [None]
  - BODY TEMPERATURE DECREASED [None]
  - BRADYCARDIA [None]
  - CONFUSIONAL STATE [None]
  - GASTRIC ULCER [None]
  - GASTROOESOPHAGITIS [None]
  - HAEMATOCRIT INCREASED [None]
  - HAEMOGLOBIN INCREASED [None]
  - INTENTIONAL OVERDOSE [None]
  - LACTIC ACIDOSIS [None]
  - NEUTROPHIL PERCENTAGE INCREASED [None]
  - OLIGURIA [None]
  - SHOCK [None]
  - URINE KETONE BODY PRESENT [None]
  - WHITE BLOOD CELL COUNT INCREASED [None]
